FAERS Safety Report 23513053 (Version 3)
Quarter: 2025Q3

REPORT INFORMATION
  Report Type: Report from Study
  Country: CA (occurrence: CA)
  Receive Date: 20240212
  Receipt Date: 20250827
  Transmission Date: 20251021
  Serious: Yes (Other)
  Sender: TAKEDA
  Company Number: CA-TAKEDA-2024TUS011576

PATIENT
  Age: 74 Year
  Sex: Male

DRUGS (19)
  1. VEDOLIZUMAB [Suspect]
     Active Substance: VEDOLIZUMAB
     Indication: Colitis ulcerative
  2. VEDOLIZUMAB [Suspect]
     Active Substance: VEDOLIZUMAB
  3. VEDOLIZUMAB [Suspect]
     Active Substance: VEDOLIZUMAB
  4. SINGULAIR [Concomitant]
     Active Substance: MONTELUKAST SODIUM
  5. SYMBICORT [Concomitant]
     Active Substance: BUDESONIDE\FORMOTEROL FUMARATE DIHYDRATE
  6. ACTONEL [Concomitant]
     Active Substance: RISEDRONATE SODIUM
  7. CELEBREX [Concomitant]
     Active Substance: CELECOXIB
  8. PROTOPIC [Concomitant]
     Active Substance: TACROLIMUS
  9. VITAMIN C [Concomitant]
     Active Substance: ASCORBIC ACID
  10. VITAMIN D [Concomitant]
     Active Substance: VITAMIN D NOS
  11. VITAMIN B [Concomitant]
     Active Substance: VITAMIN B
  12. VITAMIN E [Concomitant]
     Active Substance: .ALPHA.-TOCOPHEROL
  13. CALCIUM [Concomitant]
     Active Substance: CALCIUM
  14. ASPIRIN [Concomitant]
     Active Substance: ASPIRIN
  15. APIXABAN [Concomitant]
     Active Substance: APIXABAN
  16. PRAVASTATIN [Concomitant]
     Active Substance: PRAVASTATIN
  17. BISOPROLOL [Concomitant]
     Active Substance: BISOPROLOL
  18. LORLATINIB [Concomitant]
     Active Substance: LORLATINIB
  19. EDOXABAN TOSYLATE [Concomitant]
     Active Substance: EDOXABAN TOSYLATE

REACTIONS (7)
  - Dysarthria [Recovered/Resolved]
  - Tremor [Recovered/Resolved]
  - Transient ischaemic attack [Recovered/Resolved]
  - Dizziness [Recovered/Resolved]
  - Flushing [Recovered/Resolved]
  - Blood pressure increased [Recovered/Resolved]
  - Muscular weakness [Recovered/Resolved]

NARRATIVE: CASE EVENT DATE: 20240206
